FAERS Safety Report 15789148 (Version 2)
Quarter: 2019Q1

REPORT INFORMATION
  Report Type: Spontaneous
  Country: US (occurrence: US)
  Receive Date: 20190104
  Receipt Date: 20190107
  Transmission Date: 20190417
  Serious: No
  Sender: FDA-Public Use
  Company Number: US-PFIZER INC-2016251992

PATIENT
  Age: 25 Year
  Sex: Female

DRUGS (1)
  1. XELJANZ [Suspect]
     Active Substance: TOFACITINIB CITRATE
     Dosage: 5 MG, EVERY OTHER DAY FOR ONE MONTH

REACTIONS (2)
  - Prescribed underdose [Unknown]
  - Hepatic enzyme increased [Unknown]
